FAERS Safety Report 24368898 (Version 1)
Quarter: 2024Q3

REPORT INFORMATION
  Report Type: Report from Study
  Country: US (occurrence: US)
  Receive Date: 20240927
  Receipt Date: 20240927
  Transmission Date: 20241016
  Serious: Yes (Other)
  Sender: ABBVIE
  Company Number: US-ABBVIE-5897175

PATIENT
  Age: 70 Year
  Sex: Male
  Weight: 99 kg

DRUGS (1)
  1. HUMIRA [Suspect]
     Active Substance: ADALIMUMAB
     Indication: Psoriatic arthropathy
     Dosage: STRENGTH:40MG/0.4ML?CITRATE FREE
     Route: 058
     Dates: start: 20210830

REACTIONS (3)
  - Upper limb fracture [Not Recovered/Not Resolved]
  - Fall [Unknown]
  - Tendon rupture [Not Recovered/Not Resolved]

NARRATIVE: CASE EVENT DATE: 20240808
